FAERS Safety Report 16920675 (Version 1)
Quarter: 2019Q4

REPORT INFORMATION
  Report Type: Spontaneous
  Country: CN (occurrence: CN)
  Receive Date: 20191015
  Receipt Date: 20191015
  Transmission Date: 20200122
  Serious: Yes (Other)
  Sender: FDA-Public Use
  Company Number: CN-PFIZER INC-2019441515

PATIENT
  Age: 68 Year
  Sex: Female
  Weight: 55.1 kg

DRUGS (2)
  1. SODIUM CHLORIDE. [Concomitant]
     Active Substance: SODIUM CHLORIDE
     Indication: VEHICLE SOLUTION USE
     Dosage: 500 ML, 2X/DAY (EVERY 12 HOURS)
     Route: 041
     Dates: start: 20190923, end: 20190925
  2. CYTOSAR [Suspect]
     Active Substance: CYTARABINE
     Indication: NON-HODGKIN^S LYMPHOMA
     Dosage: 1.5 G, 2X/DAY (EVERY 12 HOURS)
     Route: 041
     Dates: start: 20190923, end: 20190925

REACTIONS (4)
  - Dry mouth [Recovering/Resolving]
  - Rash [Recovering/Resolving]
  - Erythema [Recovering/Resolving]
  - Sensation of foreign body [Recovering/Resolving]

NARRATIVE: CASE EVENT DATE: 20190925
